FAERS Safety Report 8804066 (Version 1)
Quarter: 2012Q4

REPORT INFORMATION
  Report Type: 
  Country: US (occurrence: US)
  Receive Date: 20120924
  Receipt Date: 20120924
  Transmission Date: 20130627
  Serious: Yes (Other)
  Sender: FDA-Public Use
  Company Number: US-GLAXOSMITHKLINE-A0994695A

PATIENT
  Age: 72 Year
  Sex: Male

DRUGS (1)
  1. VOTRIENT [Suspect]
     Indication: PRODUCT USED FOR UNKNOWN INDICATION
     Route: 048

REACTIONS (7)
  - Renal surgery [Unknown]
  - Hepatic neoplasm [Unknown]
  - Renal neoplasm [Unknown]
  - Pulmonary mass [Unknown]
  - Headache [Unknown]
  - Bedridden [Unknown]
  - Drug ineffective [Unknown]
